FAERS Safety Report 21016469 (Version 1)
Quarter: 2022Q2

REPORT INFORMATION
  Report Type: Spontaneous
  Country: US (occurrence: None)
  Receive Date: 20220627
  Receipt Date: 20220627
  Transmission Date: 20220720
  Serious: No
  Sender: FDA-Public Use
  Company Number: None

PATIENT
  Sex: Female

DRUGS (1)
  1. HUMIRA [Suspect]
     Active Substance: ADALIMUMAB
     Indication: Psoriasis
     Dosage: 40 MG EVERY 14 DAYS SUBCUTANEOUS
     Route: 058
     Dates: start: 20220523

REACTIONS (3)
  - Fatigue [None]
  - Nausea [None]
  - Injection site irritation [None]
